FAERS Safety Report 24093566 (Version 2)
Quarter: 2024Q3

REPORT INFORMATION
  Report Type: Spontaneous
  Country: US (occurrence: US)
  Receive Date: 20240715
  Receipt Date: 20240924
  Transmission Date: 20241016
  Serious: No
  Sender: ALKERMES
  Company Number: US-ALKERMES INC.-ALK-2024-001814

PATIENT
  Age: 23 Year
  Sex: Male
  Weight: 74.83 kg

DRUGS (2)
  1. VIVITROL [Suspect]
     Active Substance: NALTREXONE
     Indication: Alcoholism
     Dosage: 380 MILLIGRAM, Q28D
     Route: 030
     Dates: start: 20240701, end: 20240701
  2. DISULFIRAM [Concomitant]
     Active Substance: DISULFIRAM
     Indication: Alcohol use disorder
     Dosage: 250 MILLIGRAM
     Route: 048
     Dates: start: 20240701

REACTIONS (1)
  - Apathy [Unknown]

NARRATIVE: CASE EVENT DATE: 20240701
